FAERS Safety Report 6647764-4 (Version None)
Quarter: 2010Q1

REPORT INFORMATION
  Report Type: 
  Country: None (occurrence: None)
  Receive Date: 20100324
  Receipt Date: 20100315
  Transmission Date: 20100710
  Serious: Yes (Hospitalization)
  Sender: FDA-Public Use
  Company Number: US-BIOGENIDEC-2010BI007305

PATIENT
  Age: 46 Year
  Sex: Female
  Weight: 127 kg

DRUGS (14)
  1. TYSABRI [Suspect]
     Indication: MULTIPLE SCLEROSIS
     Route: 042
     Dates: start: 20080318
  2. LAMOTRIGINE [Concomitant]
     Indication: CELLULITIS
     Route: 048
  3. CHOLECALCIFEROL [Concomitant]
     Route: 048
  4. GABAPENTIN [Concomitant]
     Route: 048
  5. DEXTROAMPHETAMINE [Concomitant]
     Route: 048
  6. DEXTROAMPHETAMINE [Concomitant]
     Route: 048
  7. BACLOFEN [Concomitant]
     Route: 048
  8. DULOXETINE HYDROCHLORIDE [Concomitant]
     Route: 048
  9. AMANTADINE HCL [Concomitant]
     Route: 048
  10. LEVOTHYROXINE SODIUM [Concomitant]
     Indication: HYPOTHYROIDISM
     Route: 048
  11. BUMETANIDE [Concomitant]
     Indication: OEDEMA
     Route: 048
  12. BUMETANIDE [Concomitant]
     Indication: LEUKOCYTOSIS
     Route: 048
  13. MULTI-VITAMIN [Concomitant]
     Route: 048
  14. PRIMROSE OIL [Concomitant]
     Route: 048

REACTIONS (2)
  - CELLULITIS [None]
  - VULVOVAGINAL CANDIDIASIS [None]
